FAERS Safety Report 7002186-1 (Version None)
Quarter: 2010Q3

REPORT INFORMATION
  Report Type: 
  Country: None (occurrence: None)
  Receive Date: 20100920
  Receipt Date: 20100908
  Transmission Date: 20110219
  Serious: Yes (Hospitalization)
  Sender: FDA-Public Use
  Company Number: FR-PFIZER INC-2010113114

PATIENT
  Age: 79 Year
  Sex: Male

DRUGS (7)
  1. LYRICA [Suspect]
     Indication: CERVICAL MYELOPATHY
     Dosage: 75 MG, 1 TABLET DAILY
     Route: 048
     Dates: start: 20100426, end: 20100429
  2. LYRICA [Suspect]
     Dosage: 75 MG, 2 TABLETS DAILY
     Route: 048
     Dates: start: 20100429, end: 20100503
  3. CHRONADALATE [Concomitant]
  4. PAROXETINE HCL [Concomitant]
     Dosage: 20 MG
  5. MEPRONIZINE [Concomitant]
  6. SERESTA [Concomitant]
  7. SINEMET [Concomitant]
     Dosage: 10/100 MG

REACTIONS (1)
  - PEMPHIGOID [None]
